FAERS Safety Report 25128287 (Version 1)
Quarter: 2025Q1

REPORT INFORMATION
  Report Type: Spontaneous
  Country: FR (occurrence: FR)
  Receive Date: 20250327
  Receipt Date: 20250327
  Transmission Date: 20250409
  Serious: Yes (Other)
  Sender: JOHNSON AND JOHNSON
  Company Number: None

PATIENT
  Age: 77 Year
  Sex: Female

DRUGS (11)
  1. RISPERIDONE [Suspect]
     Active Substance: RISPERIDONE
     Indication: Wrong patient
     Route: 048
     Dates: start: 20250220, end: 20250220
  2. RISPERIDONE [Suspect]
     Active Substance: RISPERIDONE
  3. RISPERIDONE [Suspect]
     Active Substance: RISPERIDONE
  4. RISPERIDONE [Suspect]
     Active Substance: RISPERIDONE
  5. RISPERIDONE [Suspect]
     Active Substance: RISPERIDONE
  6. RISPERIDONE [Suspect]
     Active Substance: RISPERIDONE
  7. VALPROATE SODIUM [Suspect]
     Active Substance: VALPROATE SODIUM
     Indication: Wrong patient
     Route: 048
     Dates: start: 20250220, end: 20250220
  8. OXAZEPAM [Suspect]
     Active Substance: OXAZEPAM
     Indication: Wrong patient
     Route: 048
     Dates: start: 20250220, end: 20250220
  9. CYAMEMAZINE [Suspect]
     Active Substance: CYAMEMAZINE
     Indication: Wrong patient
     Route: 048
     Dates: start: 20250220, end: 20250220
  10. CHLORPROMAZINE HYDROCHLORIDE [Suspect]
     Active Substance: CHLORPROMAZINE HYDROCHLORIDE
     Indication: Wrong patient
     Route: 048
     Dates: start: 20250220, end: 20250220
  11. ZOPICLONE [Suspect]
     Active Substance: ZOPICLONE
     Indication: Wrong patient
     Route: 048
     Dates: start: 20250220, end: 20250220

REACTIONS (5)
  - Wrong patient [Recovered/Resolved]
  - Coma [Recovered/Resolved]
  - Hypothermia [Recovered/Resolved]
  - Respiratory depression [Recovered/Resolved]
  - Blood pressure decreased [Recovered/Resolved]

NARRATIVE: CASE EVENT DATE: 20250220
